FAERS Safety Report 8002282-6 (Version None)
Quarter: 2011Q4

REPORT INFORMATION
  Report Type: 
  Country: None (occurrence: None)
  Receive Date: 20111222
  Receipt Date: 20110301
  Transmission Date: 20120403
  Serious: No
  Sender: FDA-Public Use
  Company Number: US-GLAXOSMITHKLINE-A0916072A

PATIENT
  Age: 60 Year
  Sex: Female

DRUGS (1)
  1. NICOTINE POLACRILEX [Suspect]
     Indication: EX-TOBACCO USER
     Dates: start: 20110227, end: 20110301

REACTIONS (5)
  - DRUG ADMINISTRATION ERROR [None]
  - COUGH [None]
  - SENSATION OF FOREIGN BODY [None]
  - HYPERSENSITIVITY [None]
  - RETCHING [None]
